FAERS Safety Report 9531887 (Version 2)
Quarter: 2013Q4

REPORT INFORMATION
  Report Type: Spontaneous
  Country: US (occurrence: US)
  Receive Date: 20130918
  Receipt Date: 20131111
  Transmission Date: 20140711
  Serious: No
  Sender: FDA-Public Use
  Company Number: US-PFIZER INC-2013268900

PATIENT
  Age: 58 Year
  Sex: Female
  Weight: 54.42 kg

DRUGS (4)
  1. CHANTIX [Suspect]
     Indication: SMOKING CESSATION THERAPY
     Dosage: UNK
     Route: 048
  2. CHANTIX [Suspect]
     Dosage: 1 MG, UNK
     Route: 048
  3. CHANTIX [Suspect]
     Dosage: 0.5 MG, 1X/DAY
     Route: 048
     Dates: start: 2013
  4. PAXIL [Concomitant]
     Dosage: UNK

REACTIONS (1)
  - Feeling jittery [Unknown]
